FAERS Safety Report 22788636 (Version 3)
Quarter: 2023Q4

REPORT INFORMATION
  Report Type: Spontaneous
  Country: US (occurrence: US)
  Receive Date: 20230804
  Receipt Date: 20231108
  Transmission Date: 20240110
  Serious: Yes (Other)
  Sender: FDA-Public Use
  Company Number: US-GSK-US2023AMR103684

PATIENT
  Sex: Female

DRUGS (6)
  1. FLOLAN [Suspect]
     Active Substance: EPOPROSTENOL SODIUM
     Indication: Pulmonary arterial hypertension
     Dosage: UNK,32 NG/KG/MIN,PUMP RATE: 92 ML/DAY
     Dates: start: 20201022
  2. GLYCINE\MANNITOL\SODIUM CHLORIDE [Suspect]
     Active Substance: GLYCINE\MANNITOL\SODIUM CHLORIDE
     Indication: Vehicle solution use
     Dosage: UNK
  3. FLOLAN [Suspect]
     Active Substance: EPOPROSTENOL SODIUM
     Indication: Pulmonary arterial hypertension
     Dosage: UNK,40 NG/KG/MIN,PUMP RATE: 77 ML/DAY,VIAL STRENGTH:1.5 MG
     Dates: start: 20221022
  4. GLYCINE\MANNITOL\SODIUM CHLORIDE [Suspect]
     Active Substance: GLYCINE\MANNITOL\SODIUM CHLORIDE
     Indication: Vehicle solution use
     Dosage: UNK
  5. TADALAFIL [Suspect]
     Active Substance: TADALAFIL
     Indication: Product used for unknown indication
     Dosage: 1 DF, BID
  6. TADALAFIL [Suspect]
     Active Substance: TADALAFIL
     Dosage: 1 DF, QD

REACTIONS (4)
  - Vascular device infection [Unknown]
  - Headache [Unknown]
  - Nausea [Unknown]
  - Flushing [Unknown]
